FAERS Safety Report 7753585-1 (Version None)
Quarter: 2011Q3

REPORT INFORMATION
  Report Type: 
  Country: None (occurrence: None)
  Receive Date: 20110915
  Receipt Date: 20110908
  Transmission Date: 20111222
  Serious: Yes (Hospitalization)
  Sender: FDA-Public Use
  Company Number: US-GLAXOSMITHKLINE-A0905640A

PATIENT
  Age: 61 Year
  Sex: Male

DRUGS (6)
  1. LIPITOR [Concomitant]
  2. LISINOPRIL [Concomitant]
  3. HYDROCHLOROTHIAZIDE [Concomitant]
  4. AVANDIA [Suspect]
     Indication: TYPE 2 DIABETES MELLITUS
     Dosage: 2MG PER DAY
     Route: 048
     Dates: start: 20071201, end: 20100701
  5. NEXIUM [Concomitant]
  6. CELEBREX [Concomitant]

REACTIONS (11)
  - TRANSIENT ISCHAEMIC ATTACK [None]
  - THROMBOSIS [None]
  - HEADACHE [None]
  - EJECTION FRACTION [None]
  - CEREBRAL INFARCTION [None]
  - MEMORY IMPAIRMENT [None]
  - ANGER [None]
  - CEREBROVASCULAR ACCIDENT [None]
  - DEPRESSION [None]
  - MULTIPLE INJURIES [None]
  - APRAXIA [None]
